FAERS Safety Report 8320395-6 (Version None)
Quarter: 2012Q2

REPORT INFORMATION
  Report Type: 
  Country: None (occurrence: None)
  Receive Date: 20120426
  Receipt Date: 20120426
  Transmission Date: 20120825
  Serious: Yes (Other)
  Sender: FDA-Public Use
  Company Number: None

PATIENT
  Age: 73 Year
  Sex: Female
  Weight: 58.0604 kg

DRUGS (1)
  1. HIBICLENS [Suspect]
     Indication: PREOPERATIVE CARE
     Dates: start: 20120328

REACTIONS (4)
  - DRUG ADMINISTRATION ERROR [None]
  - APPLICATION SITE REACTION [None]
  - VULVOVAGINAL PAIN [None]
  - VULVOVAGINAL BURNING SENSATION [None]
